FAERS Safety Report 8637593 (Version 6)
Quarter: 2014Q1

REPORT INFORMATION
  Report Type: Report from Study
  Country: MX (occurrence: MX)
  Receive Date: 20120627
  Receipt Date: 20140326
  Transmission Date: 20141002
  Serious: Yes (Hospitalization, Other)
  Sender: FDA-Public Use
  Company Number: PHHY2012MX049103

PATIENT
  Age: 76 Year
  Sex: Female

DRUGS (6)
  1. EXFORGE HCT [Suspect]
     Indication: HYPERTENSION
     Dosage: 1 DF (160/5/12.5MG) DAILY
     Route: 048
  2. EXFORGE HCT [Suspect]
     Dosage: 2 DF (160/5/12.5MG) DAILY
     Route: 048
     Dates: start: 20120528
  3. LOPRESOR [Concomitant]
     Indication: HYPERTENSION
     Dosage: 1 DF, PER DAY
     Dates: start: 201203
  4. CILOSTAZOL [Concomitant]
     Indication: ANTICOAGULANT THERAPY
     Dosage: 1 DF, PER DAY
     Dates: start: 201101
  5. ISCOVER [Concomitant]
     Indication: ANTICOAGULANT THERAPY
     Dosage: 1 DF, PER DAY
     Dates: start: 201101, end: 201206
  6. DABIGATRAN ETEXILATE [Concomitant]
     Indication: THROMBOSIS
     Dosage: 1 DF, PER DAY
     Dates: start: 201206

REACTIONS (10)
  - Femur fracture [Recovered/Resolved]
  - Swelling [Unknown]
  - Pain [Unknown]
  - Fall [Recovered/Resolved]
  - Cataract [Not Recovered/Not Resolved]
  - Vision blurred [Not Recovered/Not Resolved]
  - Decreased appetite [Not Recovered/Not Resolved]
  - Blood pressure fluctuation [Recovered/Resolved]
  - Weight increased [Not Recovered/Not Resolved]
  - Blood pressure increased [Not Recovered/Not Resolved]
